FAERS Safety Report 7326471-9 (Version None)
Quarter: 2011Q1

REPORT INFORMATION
  Report Type: 
  Country: None (occurrence: None)
  Receive Date: 20110218
  Receipt Date: 20110202
  Transmission Date: 20110831
  Serious: Yes (Hospitalization, Other)
  Sender: FDA-Public Use
  Company Number: 2011MA000996

PATIENT
  Sex: Female

DRUGS (1)
  1. AMLODIPINE BESYLATE [Suspect]
     Dosage: 420 MG; PO
     Route: 048

REACTIONS (13)
  - SUICIDE ATTEMPT [None]
  - PCO2 DECREASED [None]
  - INTENTIONAL OVERDOSE [None]
  - SINUS TACHYCARDIA [None]
  - SOMNOLENCE [None]
  - HYPOTENSION [None]
  - SELF-MEDICATION [None]
  - BLOOD GLUCOSE INCREASED [None]
  - RHONCHI [None]
  - BLOOD BICARBONATE DECREASED [None]
  - BLOOD PH DECREASED [None]
  - BASE EXCESS DECREASED [None]
  - COMA SCALE ABNORMAL [None]
